APPROVED DRUG PRODUCT: LIDOCAINE HYDROCHLORIDE
Active Ingredient: LIDOCAINE HYDROCHLORIDE
Strength: 2%
Dosage Form/Route: JELLY;TOPICAL
Application: A081318 | Product #001
Applicant: COSETTE PHARMACEUTICALS INC
Approved: Apr 29, 1993 | RLD: No | RS: No | Type: DISCN